FAERS Safety Report 13083167 (Version 1)
Quarter: 2017Q1

REPORT INFORMATION
  Report Type: Report from Study
  Country: DE (occurrence: DE)
  Receive Date: 20170104
  Receipt Date: 20170104
  Transmission Date: 20170428
  Serious: Yes (Hospitalization)
  Sender: FDA-Public Use
  Company Number: DE-UCBSA-2017000240

PATIENT
  Sex: Female

DRUGS (7)
  1. CERTOLIZUMAB PEGOL RA [Suspect]
     Active Substance: CERTOLIZUMAB PEGOL
     Indication: RHEUMATOID ARTHRITIS
     Dosage: UNK
     Dates: start: 201011, end: 201110
  2. ROACTEMRA [Concomitant]
     Active Substance: TOCILIZUMAB
     Dosage: 162 MG, WEEKLY (QW)
     Route: 058
     Dates: start: 201502, end: 20160110
  3. ROACTEMRA [Concomitant]
     Active Substance: TOCILIZUMAB
     Dosage: UNK
     Dates: start: 201110, end: 201310
  4. LODOTRA [Concomitant]
     Active Substance: PREDNISONE
     Indication: PRODUCT USED FOR UNKNOWN INDICATION
     Dosage: 7 MG
     Dates: start: 20150702
  5. IBUPROFEN. [Concomitant]
     Active Substance: IBUPROFEN
     Indication: PRODUCT USED FOR UNKNOWN INDICATION
     Dosage: 600 MG
  6. BONVIVA [Concomitant]
     Active Substance: IBANDRONATE SODIUM
     Indication: PRODUCT USED FOR UNKNOWN INDICATION
     Dosage: UNK
     Route: 058
     Dates: start: 2010
  7. ROACTEMRA [Concomitant]
     Active Substance: TOCILIZUMAB
     Indication: PRODUCT USED FOR UNKNOWN INDICATION
     Dosage: UNK
     Dates: start: 200902, end: 201011

REACTIONS (1)
  - BRCA2 gene mutation [Recovered/Resolved]

NARRATIVE: CASE EVENT DATE: 201601
